FAERS Safety Report 9556979 (Version 2)
Quarter: 2014Q2

REPORT INFORMATION
  Report Type: Spontaneous
  Country: TW (occurrence: None)
  Receive Date: 20130924
  Receipt Date: 20140529
  Transmission Date: 20141212
  Serious: Yes (Other)
  Sender: FDA-Public Use
  Company Number: SYM-2013-10812

PATIENT
  Age: 57 Year
  Sex: Female

DRUGS (2)
  1. METRONIDAZOLE (METRONIDAZOLE) [Suspect]
     Indication: ILEUS PARALYTIC
  2. METRONIDAZOLE (METRONIDAZOLE) [Suspect]

REACTIONS (3)
  - Encephalopathy [None]
  - Off label use [None]
  - Nystagmus [None]
